FAERS Safety Report 4582146-0 (Version None)
Quarter: 2005Q1

REPORT INFORMATION
  Report Type: 
  Country: None (occurrence: None)
  Receive Date: 20050119
  Receipt Date: 20040204
  Transmission Date: 20050727
  Serious: Yes (Other)
  Sender: FDA-Public Use
  Company Number: A03200400365

PATIENT
  Age: 54 Year
  Sex: Female
  Weight: 68.0396 kg

DRUGS (3)
  1. PLAVIX [Suspect]
     Indication: ACUTE CORONARY SYNDROME
     Dosage: 75 MG QD - ORAL
     Route: 048
     Dates: start: 20040123, end: 20040202
  2. PLAVIX [Suspect]
     Indication: MYOCARDIAL INFARCTION
     Dosage: 75 MG QD - ORAL
     Route: 048
     Dates: start: 20040123, end: 20040202
  3. LIPITOR [Suspect]
     Dosage: 10 MG QD - ORAL
     Route: 048
     Dates: start: 20040114, end: 20040202

REACTIONS (4)
  - PAIN [None]
  - PRURITUS [None]
  - RASH PAPULAR [None]
  - SWELLING [None]
